FAERS Safety Report 8920187 (Version 2)
Quarter: 2013Q1

REPORT INFORMATION
  Report Type: Spontaneous
  Country: JP (occurrence: JP)
  Receive Date: 20121122
  Receipt Date: 20130117
  Transmission Date: 20140127
  Serious: Yes (Other)
  Sender: FDA-Public Use
  Company Number: JP-ROCHE-1157864

PATIENT
  Age: 59 Year
  Sex: Male

DRUGS (9)
  1. AVASTIN [Suspect]
     Indication: LUNG NEOPLASM MALIGNANT
     Dosage: 6 COURSES
     Route: 041
     Dates: start: 20120613
  2. KYTRIL [Suspect]
     Indication: PRODUCT USED FOR UNKNOWN INDICATION
     Dosage: DOSAGE IS UNCERTAIN
     Route: 065
     Dates: start: 2012, end: 2012
  3. ALIMTA [Suspect]
     Indication: LUNG NEOPLASM MALIGNANT
     Dosage: UNCERTAIN DOSAGE AND THE FIRST COURSE
     Route: 041
     Dates: start: 20120613, end: 20120613
  4. ALIMTA [Suspect]
     Indication: LUNG NEOPLASM MALIGNANT
     Dosage: UNCERTAIN DOSAGE AND THE 2-4TH COURSE
     Route: 041
     Dates: start: 2012, end: 2012
  5. ALIMTA [Suspect]
     Indication: LUNG NEOPLASM MALIGNANT
     Dosage: DOSAGE IS UNCERTAIN.
     Route: 041
     Dates: start: 2012
  6. CISPLATIN [Concomitant]
     Indication: LUNG NEOPLASM MALIGNANT
     Dosage: DOSAGE IS UNCERTAIN
     Route: 041
     Dates: start: 20120613, end: 20120613
  7. CARBOPLATIN [Concomitant]
     Indication: LUNG NEOPLASM MALIGNANT
     Dosage: DOSAGE IS UNCERTAIN.
     Route: 041
     Dates: start: 2012, end: 2012
  8. DECADRON [Concomitant]
     Dosage: DOSAGE IS UNCERTAIN.
     Route: 041
     Dates: start: 2012, end: 2012
  9. FOSAPREPITANT MEGLUMINE [Concomitant]
     Dosage: DOSAGE IS UNCERTAIN
     Route: 041
     Dates: start: 2012, end: 2012

REACTIONS (2)
  - Alanine aminotransferase increased [Unknown]
  - Aspartate aminotransferase increased [Unknown]
